FAERS Safety Report 6888476-1 (Version None)
Quarter: 2010Q3

REPORT INFORMATION
  Report Type: 
  Country: None (occurrence: None)
  Receive Date: 20100730
  Receipt Date: 20100719
  Transmission Date: 20110219
  Serious: Yes (Hospitalization, Other)
  Sender: FDA-Public Use
  Company Number: PHHY2009BR50457

PATIENT
  Sex: Male
  Weight: 107 kg

DRUGS (29)
  1. TEGRETOL [Suspect]
     Indication: SCHIZOPHRENIA, PARANOID TYPE
     Dosage: 200 MG, QD
     Route: 048
     Dates: start: 20030101
  2. TEGRETOL [Interacting]
     Indication: DEPRESSION
     Dosage: 400 MG, BID
     Dates: start: 20091117
  3. TEGRETOL [Interacting]
     Dosage: UNK
  4. TEGRETOL-XR [Interacting]
     Dosage: 200 MG, BID
     Route: 048
     Dates: start: 20030101
  5. TEGRETOL-XR [Interacting]
     Dosage: 2 DF (200 MG EACH), BID
     Route: 048
  6. TEGRETOL-XR [Interacting]
     Dosage: 400 MG, BID
  7. CARBOLITIUM [Interacting]
     Indication: MOOD ALTERED
     Dosage: 300 MG, TID
     Dates: start: 20100401
  8. CLONAZEPAM [Interacting]
     Indication: DEPRESSION
     Dosage: 5 DRP, DAILY
  9. CLONAZEPAM [Interacting]
     Indication: SLEEP DISORDER
     Dosage: 60 DRP, AT NIGHT
     Dates: start: 20030101
  10. GEODON [Interacting]
     Indication: SCHIZOPHRENIA
     Dosage: 40 MG, BID
     Route: 048
     Dates: start: 20080401
  11. GEODON [Interacting]
     Dosage: 80 MG, BID
  12. GEODON [Interacting]
     Dosage: 80 MG, QD (1 TABLET DAILY)
  13. SEROQUEL [Concomitant]
  14. RISPERIDONE [Concomitant]
     Dosage: UNK
  15. RISPERIDONE [Concomitant]
     Dosage: 1 DF, DAILY
     Dates: start: 20060101, end: 20070101
  16. HALDOL [Concomitant]
     Dosage: UNK
     Dates: start: 20070101
  17. ZYPREXA [Concomitant]
     Dosage: QID
  18. ZYPREXA [Concomitant]
     Dosage: MAXIMUM DOSAGE
     Dates: start: 20071001, end: 20080401
  19. NEOZINE [Concomitant]
     Indication: SLEEP DISORDER
     Dosage: 25 MG, AT NIGHT
  20. NEOZINE [Concomitant]
     Dosage: 100 MG, UNK
  21. NEOZINE [Concomitant]
     Dosage: 50 MG, QD
  22. PAROXETINE HCL [Concomitant]
     Indication: DEPRESSION
     Dosage: 60 MG, 1 TABLET
     Route: 048
     Dates: start: 20090901
  23. AMPLICTIL [Concomitant]
     Indication: SLEEP DISORDER
     Dosage: 2 DF, AT NIGHT
  24. AMPLICTIL [Concomitant]
     Indication: NAUSEA
  25. SERTRALINE HYDROCHLORIDE [Concomitant]
     Indication: DEPRESSION
     Dosage: 50 MG, BID
     Dates: start: 20050101, end: 20080801
  26. AKINETON [Concomitant]
     Dosage: 4 MG, QD (1TABLET DAILY)
  27. PONDERA [Concomitant]
  28. ANTICONVULSANTS [Concomitant]
  29. ANTIPYRETICS [Concomitant]

REACTIONS (33)
  - AGGRESSION [None]
  - BLOOD CHOLESTEROL INCREASED [None]
  - BLOOD TRIGLYCERIDES INCREASED [None]
  - CONVULSION [None]
  - CRYING [None]
  - DELUSION [None]
  - DEPRESSION [None]
  - DRUG INTERACTION [None]
  - DRUG LEVEL DECREASED [None]
  - FACIAL PAIN [None]
  - FATIGUE [None]
  - GRIMACING [None]
  - HALLUCINATION, AUDITORY [None]
  - HALLUCINATIONS, MIXED [None]
  - INSOMNIA [None]
  - LEARNING DISORDER [None]
  - MENTAL IMPAIRMENT [None]
  - MOOD SWINGS [None]
  - MOVEMENT DISORDER [None]
  - MUSCLE SPASMS [None]
  - NAUSEA [None]
  - PAIN IN EXTREMITY [None]
  - PANIC ATTACK [None]
  - PANIC DISORDER [None]
  - PANIC REACTION [None]
  - PSYCHOTIC DISORDER [None]
  - SOMNOLENCE [None]
  - SPEECH DISORDER [None]
  - SUICIDE ATTEMPT [None]
  - TREMOR [None]
  - WEIGHT INCREASED [None]
  - WHITE BLOOD CELL COUNT INCREASED [None]
  - WITHDRAWAL SYNDROME [None]
